FAERS Safety Report 20909326 (Version 2)
Quarter: 2022Q2

REPORT INFORMATION
  Report Type: Report from Study
  Country: FR (occurrence: FR)
  Receive Date: 20220603
  Receipt Date: 20220628
  Transmission Date: 20220721
  Serious: Yes (Other)
  Sender: FDA-Public Use
  Company Number: FR-BRISTOL-MYERS SQUIBB COMPANY-2022-044524

PATIENT
  Age: 52 Year
  Sex: Male

DRUGS (26)
  1. LENALIDOMIDE [Suspect]
     Active Substance: LENALIDOMIDE
     Indication: Follicular lymphoma
     Route: 048
     Dates: start: 20210719, end: 20210808
  2. LENALIDOMIDE [Suspect]
     Active Substance: LENALIDOMIDE
     Route: 048
     Dates: start: 20210816, end: 20210905
  3. LENALIDOMIDE [Suspect]
     Active Substance: LENALIDOMIDE
     Route: 048
     Dates: start: 20210913, end: 20211003
  4. LENALIDOMIDE [Suspect]
     Active Substance: LENALIDOMIDE
     Route: 048
     Dates: start: 20211011, end: 20211031
  5. LENALIDOMIDE [Suspect]
     Active Substance: LENALIDOMIDE
     Route: 048
     Dates: start: 20211108, end: 20211128
  6. LENALIDOMIDE [Suspect]
     Active Substance: LENALIDOMIDE
     Route: 048
     Dates: start: 20211206, end: 20211226
  7. LENALIDOMIDE [Suspect]
     Active Substance: LENALIDOMIDE
     Route: 048
     Dates: start: 20220103, end: 20220123
  8. LENALIDOMIDE [Suspect]
     Active Substance: LENALIDOMIDE
     Route: 048
     Dates: start: 20220131, end: 20220220
  9. LENALIDOMIDE [Suspect]
     Active Substance: LENALIDOMIDE
     Route: 048
     Dates: start: 20220228, end: 20220320
  10. LENALIDOMIDE [Suspect]
     Active Substance: LENALIDOMIDE
     Route: 048
     Dates: start: 20220328
  11. RITUXIMAB [Suspect]
     Active Substance: RITUXIMAB
     Indication: Follicular lymphoma
     Route: 042
     Dates: start: 20210621, end: 20210712
  12. RITUXIMAB [Suspect]
     Active Substance: RITUXIMAB
     Route: 042
     Dates: start: 20210719, end: 20211011
  13. EPCORITAMAB [Suspect]
     Active Substance: EPCORITAMAB
     Indication: Follicular lymphoma
     Dosage: PRIMING DOS
     Route: 058
     Dates: start: 20210622, end: 20210622
  14. EPCORITAMAB [Suspect]
     Active Substance: EPCORITAMAB
     Dosage: INTERMEDIATE DOSE
     Route: 058
     Dates: start: 20210628, end: 20210628
  15. EPCORITAMAB [Suspect]
     Active Substance: EPCORITAMAB
     Route: 058
     Dates: start: 20210705, end: 20211004
  16. EPCORITAMAB [Suspect]
     Active Substance: EPCORITAMAB
     Route: 058
     Dates: start: 20211011, end: 20220214
  17. EPCORITAMAB [Suspect]
     Active Substance: EPCORITAMAB
     Route: 058
     Dates: start: 20220228, end: 20220328
  18. ESOMEPRAZOLE [Concomitant]
     Active Substance: ESOMEPRAZOLE
     Indication: Product used for unknown indication
  19. VALACYCLOVIR HYDROCHLORIDE [Concomitant]
     Active Substance: VALACYCLOVIR HYDROCHLORIDE
     Indication: Product used for unknown indication
  20. BACTRIM [Concomitant]
     Active Substance: SULFAMETHOXAZOLE\TRIMETHOPRIM
     Indication: Product used for unknown indication
  21. KARDEGIC [Concomitant]
     Active Substance: ASPIRIN DL-LYSINE
     Indication: Product used for unknown indication
     Dates: start: 20210719
  22. NERISONE [Concomitant]
     Active Substance: DIFLUCORTOLONE VALERATE
     Indication: Product used for unknown indication
     Dates: start: 20210906
  23. DAKIN [CLINDAMYCIN PHOSPHATE] [Concomitant]
     Indication: Product used for unknown indication
     Dates: start: 20211025
  24. DEXAMETHASONE\OXYTETRACYCLINE [Concomitant]
     Active Substance: DEXAMETHASONE\OXYTETRACYCLINE
     Indication: Product used for unknown indication
     Dates: start: 20211025
  25. CILGAVIMAB [Concomitant]
     Active Substance: CILGAVIMAB
     Indication: Product used for unknown indication
     Dates: start: 20220131
  26. TIXAGEVIMAB [Concomitant]
     Active Substance: TIXAGEVIMAB
     Indication: Product used for unknown indication
     Dates: start: 20220131

REACTIONS (1)
  - Squamous cell carcinoma [Recovered/Resolved]

NARRATIVE: CASE EVENT DATE: 20211220
